FAERS Safety Report 15051696 (Version 1)
Quarter: 2018Q2

REPORT INFORMATION
  Report Type: Spontaneous
  Country: FR (occurrence: US)
  Receive Date: 20180622
  Receipt Date: 20180622
  Transmission Date: 20180711
  Serious: Yes (Hospitalization)
  Sender: FDA-Public Use
  Company Number: FR-ANIPHARMA-2018-FR-000078

PATIENT
  Age: 84 Year
  Sex: Female

DRUGS (11)
  1. INNOHEP [Suspect]
     Active Substance: TINZAPARIN SODIUM
     Dosage: .5 ML DAILY
     Route: 058
     Dates: start: 20180116, end: 20180529
  2. TINZAPARIN SODIUM [Suspect]
     Active Substance: TINZAPARIN SODIUM
     Dosage: 0.5 ML QD
     Route: 058
     Dates: start: 20180116, end: 20180529
  3. FASLODEX [Suspect]
     Active Substance: FULVESTRANT
     Dosage: 250 MG/5 ML
     Route: 030
     Dates: start: 20180509
  4. UVEDOSE [Concomitant]
     Active Substance: CHOLECALCIFEROL
  5. CANDESARTAN CILEXETIL. [Suspect]
     Active Substance: CANDESARTAN CILEXETIL
     Indication: PRODUCT USED FOR UNKNOWN INDICATION
     Dosage: 32 MG DAILY
     Route: 048
     Dates: start: 20150910, end: 20180529
  6. SECTRAL [Concomitant]
     Active Substance: ACEBUTOLOL HYDROCHLORIDE
  7. DIGOXIN. [Suspect]
     Active Substance: DIGOXIN
     Dosage: 0.25 MG QD
     Route: 048
     Dates: start: 20130527, end: 20180529
  8. LESCOL [Suspect]
     Active Substance: FLUVASTATIN SODIUM
     Dosage: 80 MG DAILY
     Route: 048
     Dates: end: 20180529
  9. IBRANCE [Suspect]
     Active Substance: PALBOCICLIB
     Dosage: 1 DF DAILY
     Route: 048
     Dates: start: 20180509
  10. STAGID [Suspect]
     Active Substance: METFORMIN PAMOATE
     Dosage: 700 MG 1 DF DAILY
     Route: 048
     Dates: start: 2016, end: 20180529
  11. LASILIX [Suspect]
     Active Substance: FUROSEMIDE
     Dosage: 20 MG DAILY
     Route: 048
     Dates: end: 20180529

REACTIONS (2)
  - Condition aggravated [Not Recovered/Not Resolved]
  - Acute kidney injury [Not Recovered/Not Resolved]

NARRATIVE: CASE EVENT DATE: 201802
